FAERS Safety Report 14550255 (Version 2)
Quarter: 2022Q3

REPORT INFORMATION
  Report Type: Report from Study
  Country: US (occurrence: US)
  Receive Date: 20180219
  Receipt Date: 20220901
  Transmission Date: 20221027
  Serious: Yes (Death, Other)
  Sender: FDA-Public Use
  Company Number: US-ACADIA PHARMACEUTICALS INC.-ACA-2017-006822

PATIENT
  Age: 83 Year
  Sex: Male

DRUGS (20)
  1. NUPLAZID [Suspect]
     Active Substance: PIMAVANSERIN TARTRATE
     Indication: Parkinson^s disease
     Dosage: 34 MILLIGRAM, QD
     Route: 048
     Dates: start: 20201209, end: 202206
  2. NUPLAZID [Suspect]
     Active Substance: PIMAVANSERIN TARTRATE
     Indication: Hallucination
  3. NUPLAZID [Suspect]
     Active Substance: PIMAVANSERIN TARTRATE
     Indication: Hallucination
     Dosage: 17 MG, QD
     Route: 065
  4. NUPLAZID [Suspect]
     Active Substance: PIMAVANSERIN TARTRATE
     Indication: Delusion
  5. NUPLAZID [Suspect]
     Active Substance: PIMAVANSERIN TARTRATE
     Indication: Parkinson^s disease psychosis
  6. AMANTADINE [Concomitant]
     Active Substance: AMANTADINE
  7. BENZTROPINE [Concomitant]
     Active Substance: BENZTROPINE
  8. CLONAZEPAM [Concomitant]
     Active Substance: CLONAZEPAM
  9. VITAMIN B12 [Concomitant]
     Active Substance: CYANOCOBALAMIN
  10. ESCITALOPRAM [Concomitant]
     Active Substance: ESCITALOPRAM OXALATE
  11. FOLIC ACID [Concomitant]
     Active Substance: FOLIC ACID
  12. MEMANTINE [Concomitant]
     Active Substance: MEMANTINE
  13. NEUPRO [Concomitant]
     Active Substance: ROTIGOTINE
  14. RISPERIDONE [Concomitant]
     Active Substance: RISPERIDONE
  15. RYTARY [Concomitant]
     Active Substance: CARBIDOPA\LEVODOPA
  16. SIMVASTATIN [Concomitant]
     Active Substance: SIMVASTATIN
  17. TIZANIDINE [Concomitant]
     Active Substance: TIZANIDINE
  18. VITAMIN D NOS [Concomitant]
     Active Substance: VITAMIN D NOS
  19. DONEPEZIL [Concomitant]
     Active Substance: DONEPEZIL
  20. LEVOTHYROXINE [Concomitant]
     Active Substance: LEVOTHYROXINE

REACTIONS (2)
  - Death [Recovered/Resolved]
  - Prescribed underdose [Recovered/Resolved]

NARRATIVE: CASE EVENT DATE: 20220822
